FAERS Safety Report 14670192 (Version 1)
Quarter: 2018Q1

REPORT INFORMATION
  Report Type: Spontaneous
  Country: CA (occurrence: CA)
  Receive Date: 20180322
  Receipt Date: 20180322
  Transmission Date: 20180509
  Serious: Yes (Other)
  Sender: FDA-Public Use
  Company Number: CA-BAYER-2018-051741

PATIENT
  Sex: Female
  Weight: 71.66 kg

DRUGS (2)
  1. MIRENA [Suspect]
     Active Substance: LEVONORGESTREL
     Indication: MENORRHAGIA
     Dosage: 20 MCG/24HR, CONT
     Route: 015
  2. MIRENA [Suspect]
     Active Substance: LEVONORGESTREL
     Indication: MENORRHAGIA
     Dosage: UNK

REACTIONS (30)
  - Apathy [Unknown]
  - Discomfort [Unknown]
  - Ear discomfort [Unknown]
  - Tinnitus [Unknown]
  - Anxiety [Unknown]
  - Dry eye [Unknown]
  - Gastrointestinal disorder [Unknown]
  - Peripheral vascular disorder [Unknown]
  - Dizziness [Unknown]
  - Dyslexia [Unknown]
  - Headache [Unknown]
  - Hypoaesthesia [Unknown]
  - Insomnia [Unknown]
  - Urinary incontinence [Unknown]
  - Vision blurred [Unknown]
  - Fatigue [Unknown]
  - Mood swings [Unknown]
  - Amnesia [Unknown]
  - Breast pain [Unknown]
  - Disturbance in attention [Unknown]
  - Facial neuralgia [Unknown]
  - Irritability [Unknown]
  - Limb discomfort [Unknown]
  - Muscle spasms [Unknown]
  - Muscle tightness [Unknown]
  - Visual impairment [Unknown]
  - Weight increased [Unknown]
  - Alopecia [Unknown]
  - Back pain [Unknown]
  - Night sweats [Unknown]
